FAERS Safety Report 16364171 (Version 1)
Quarter: 2019Q2

REPORT INFORMATION
  Report Type: Spontaneous
  Country: TR (occurrence: TR)
  Receive Date: 20190528
  Receipt Date: 20190528
  Transmission Date: 20190711
  Serious: Yes (Hospitalization)
  Sender: FDA-Public Use
  Company Number: PHHY2019TR116759

PATIENT
  Age: 32 Year
  Sex: Male

DRUGS (5)
  1. PHENIRAMINE [Suspect]
     Active Substance: PHENIRAMINE
     Indication: ANGIOEDEMA
  2. BUPROPION. [Suspect]
     Active Substance: BUPROPION
     Indication: MAJOR DEPRESSION
     Dosage: 150 MG, QD FOR 10 DAYS
     Route: 065
  3. PREDNISOLONE. [Suspect]
     Active Substance: PREDNISOLONE
     Indication: URTICARIA
     Dosage: UNK
     Route: 065
  4. PREDNISOLONE. [Suspect]
     Active Substance: PREDNISOLONE
     Indication: ANGIOEDEMA
  5. PHENIRAMINE [Suspect]
     Active Substance: PHENIRAMINE
     Indication: URTICARIA
     Dosage: UNK
     Route: 065

REACTIONS (5)
  - Skin plaque [Unknown]
  - Urticaria [Unknown]
  - Therapeutic response decreased [Unknown]
  - Swelling face [Unknown]
  - Angioedema [Recovering/Resolving]
